FAERS Safety Report 16487581 (Version 1)
Quarter: 2019Q2

REPORT INFORMATION
  Report Type: Spontaneous
  Country: US (occurrence: US)
  Receive Date: 20190627
  Receipt Date: 20190627
  Transmission Date: 20190711
  Serious: No
  Sender: FDA-Public Use
  Company Number: US-AMNEAL PHARMACEUTICALS-2018AMN00592

PATIENT
  Sex: Female
  Weight: 61.22 kg

DRUGS (2)
  1. ESTRADIOL. [Suspect]
     Active Substance: ESTRADIOL
     Indication: VULVOVAGINAL DRYNESS
     Dosage: 1 TABLETS, 2X/WEEK
     Route: 067
     Dates: start: 201610
  2. TESTOSTERONE. [Concomitant]
     Active Substance: TESTOSTERONE
     Dosage: UNK
     Route: 065
     Dates: start: 201806

REACTIONS (2)
  - Adnexa uteri pain [Not Recovered/Not Resolved]
  - Vaginal odour [Not Recovered/Not Resolved]
